FAERS Safety Report 4269854-6 (Version None)
Quarter: 2004Q1

REPORT INFORMATION
  Report Type: 
  Country: None (occurrence: None)
  Receive Date: 20040112
  Receipt Date: 20040112
  Transmission Date: 20041129
  Serious: Yes (Hospitalization)
  Sender: FDA-Public Use
  Company Number: None

PATIENT
  Age: 63 Year
  Sex: Male

DRUGS (10)
  1. WARFARIN SODIUM [Suspect]
     Indication: THROMBOSIS
     Dosage: 5MG ALT W/ 7.5 MG QOD
     Dates: start: 19960101
  2. FUROSEMIDE [Concomitant]
  3. NPH INSULIN [Concomitant]
  4. ZOCOR [Concomitant]
  5. TERAZOSIN HCL [Concomitant]
  6. TRAMADOL [Concomitant]
  7. LORATADINE [Concomitant]
  8. FOSINOPRIL SODIUM [Concomitant]
  9. AVANDIA [Concomitant]
  10. LEVOTHYROXINE SODIUM [Concomitant]

REACTIONS (1)
  - NO ADVERSE EFFECT [None]
